FAERS Safety Report 4903897-1 (Version None)
Quarter: 2006Q1

REPORT INFORMATION
  Report Type: 
  Country: None (occurrence: None)
  Receive Date: 20060208
  Receipt Date: 20050722
  Transmission Date: 20060701
  Serious: No
  Sender: FDA-Public Use
  Company Number: US-GLAXOSMITHKLINE-A0567245A

PATIENT
  Age: 53 Year
  Sex: Female

DRUGS (1)
  1. PAXIL [Suspect]
     Indication: DEPRESSION
     Route: 048
     Dates: end: 20040701

REACTIONS (1)
  - DRUG INEFFECTIVE [None]
